FAERS Safety Report 9169027 (Version 1)
Quarter: 2013Q1

REPORT INFORMATION
  Report Type: Spontaneous
  Country: US (occurrence: US)
  Receive Date: 20130318
  Receipt Date: 20130318
  Transmission Date: 20140127
  Serious: No
  Sender: FDA-Public Use
  Company Number: US-TEVA-391361USA

PATIENT
  Age: 27 Year
  Sex: Female
  Weight: 83.08 kg

DRUGS (2)
  1. COPAXONE [Suspect]
     Indication: MULTIPLE SCLEROSIS
     Route: 058
     Dates: start: 20130103, end: 20130311
  2. BIRTH CONTROL PILLS [Concomitant]

REACTIONS (1)
  - Alopecia [Not Recovered/Not Resolved]
